FAERS Safety Report 7068894-1 (Version None)
Quarter: 2010Q4

REPORT INFORMATION
  Report Type: 
  Country: None (occurrence: None)
  Receive Date: 20101028
  Receipt Date: 20101013
  Transmission Date: 20110411
  Serious: Yes (Other)
  Sender: FDA-Public Use
  Company Number: US-SANOFI-AVENTIS-2010SA063292

PATIENT
  Sex: Female

DRUGS (3)
  1. MULTAQ [Suspect]
     Route: 065
  2. ANTIHYPERTENSIVES [Suspect]
     Indication: PULMONARY HYPERTENSION
     Route: 048
     Dates: start: 20090502, end: 20090807
  3. ANTIHYPERTENSIVES [Suspect]
     Route: 048
     Dates: start: 20090808

REACTIONS (1)
  - HEPATOCELLULAR INJURY [None]
